FAERS Safety Report 10508260 (Version 3)
Quarter: 2014Q4

REPORT INFORMATION
  Report Type: Spontaneous
  Country: CA (occurrence: CA)
  Receive Date: 20141009
  Receipt Date: 20141121
  Transmission Date: 20150528
  Serious: Yes (Other)
  Sender: FDA-Public Use
  Company Number: CA-MUNDIPHARMA DS AND PHARMACOVIGILANCE-CAN-2014-0005255

PATIENT
  Age: 48 Year
  Sex: Male
  Weight: 109.75 kg

DRUGS (7)
  1. METOPROLOL [Concomitant]
     Active Substance: METOPROLOL
     Indication: BLOOD PRESSURE
     Dosage: 12.5 MG, BID
     Route: 048
  2. PRAVASTATIN [Concomitant]
     Active Substance: PRAVASTATIN\PRAVASTATIN SODIUM
     Indication: BLOOD CHOLESTEROL
     Dosage: 40 MG, DAILY
     Route: 048
  3. BRILINTA [Concomitant]
     Active Substance: TICAGRELOR
     Indication: PROPHYLAXIS
     Dosage: 90 MG, BID
     Route: 048
  4. MAVIK [Concomitant]
     Active Substance: TRANDOLAPRIL
     Indication: BLOOD PRESSURE
     Dosage: 1 MG, DAILY AT LUNCHTIME
     Route: 048
  5. BUTRANS [Suspect]
     Active Substance: BUPRENORPHINE
     Indication: PAIN
     Dosage: 10 MCG, Q1H
     Route: 062
     Dates: start: 201408, end: 20140920
  6. BUTRANS [Suspect]
     Active Substance: BUPRENORPHINE
     Indication: PAIN
     Dosage: 5 MCG, Q1H
     Route: 062
     Dates: start: 20140627, end: 201409
  7. ASPIRIN. [Concomitant]
     Active Substance: ASPIRIN
     Indication: PROPHYLAXIS
     Dosage: 80 MG, DAILY
     Route: 048

REACTIONS (8)
  - Blood pressure increased [Unknown]
  - Flushing [Not Recovered/Not Resolved]
  - Face oedema [Unknown]
  - Headache [Not Recovered/Not Resolved]
  - Drug ineffective [Not Recovered/Not Resolved]
  - Expired product administered [Unknown]
  - Polycythaemia [Not Recovered/Not Resolved]
  - Red blood cell count increased [Not Recovered/Not Resolved]

NARRATIVE: CASE EVENT DATE: 20140627
